FAERS Safety Report 8455418-7 (Version None)
Quarter: 2012Q2

REPORT INFORMATION
  Report Type: 
  Country: None (occurrence: None)
  Receive Date: 20120621
  Receipt Date: 20120612
  Transmission Date: 20120825
  Serious: Yes (Death)
  Sender: FDA-Public Use
  Company Number: CA-BRISTOL-MYERS SQUIBB COMPANY-16684565

PATIENT
  Age: 70 Year
  Sex: Male

DRUGS (18)
  1. PREDNISONE [Concomitant]
  2. PERINDOPRIL ERBUMINE [Concomitant]
  3. FUROSEMIDE [Concomitant]
  4. METFORMIN HCL [Concomitant]
  5. HYDROMORPHONE HCL [Concomitant]
  6. CRESTOR [Concomitant]
  7. LYRICA [Concomitant]
  8. NEXIUM [Concomitant]
  9. FLOMAX [Concomitant]
  10. TRIDURAL [Concomitant]
  11. CALCIUM [Concomitant]
  12. ALLOPURINOL [Concomitant]
  13. ORENCIA [Suspect]
     Indication: RHEUMATOID ARTHRITIS
     Route: 042
     Dates: start: 20110719
  14. METHOTREXATE [Concomitant]
  15. METOPROLOL [Concomitant]
  16. LEUCOVORIN CALCIUM [Concomitant]
  17. RANITIDINE [Concomitant]
  18. COUMADIN [Concomitant]

REACTIONS (1)
  - DEATH [None]
